FAERS Safety Report 9361225 (Version 2)
Quarter: 2014Q1

REPORT INFORMATION
  Report Type: Spontaneous
  Country: US (occurrence: US)
  Receive Date: 20130621
  Receipt Date: 20140203
  Transmission Date: 20141002
  Serious: Yes (Death, Other)
  Sender: FDA-Public Use
  Company Number: US-BRISTOL-MYERS SQUIBB COMPANY-19022136

PATIENT
  Sex: Male

DRUGS (3)
  1. BYETTA [Suspect]
     Indication: DIABETES MELLITUS
     Dates: start: 200902, end: 201201
  2. JANUVIA [Suspect]
     Indication: DIABETES MELLITUS
     Dates: start: 201007, end: 201201
  3. JANUMET [Suspect]
     Indication: DIABETES MELLITUS
     Dates: start: 201007, end: 201201

REACTIONS (1)
  - Pancreatic carcinoma [Fatal]
